FAERS Safety Report 7026958-2 (Version None)
Quarter: 2010Q3

REPORT INFORMATION
  Report Type: 
  Country: None (occurrence: None)
  Receive Date: 20100929
  Receipt Date: 20100913
  Transmission Date: 20110219
  Serious: Yes (Disabling, Other)
  Sender: FDA-Public Use
  Company Number: 2010-00945

PATIENT
  Age: 84 Year
  Sex: Male
  Weight: 94 kg

DRUGS (6)
  1. SIMVASTATIN [Suspect]
     Indication: HYPERCHOLESTEROLAEMIA
     Dosage: 40 MG (1 IN 1 D),ORAL
     Route: 048
     Dates: start: 20020101
  2. ALLOPURINOL [Concomitant]
  3. ASPIRIN [Concomitant]
  4. PERINDOPRIL (UNKNOWN) [Concomitant]
  5. TAMSULOSIN (UNKNOWN) [Concomitant]
  6. XALANTAN (UNKNOWN) [Concomitant]

REACTIONS (1)
  - CATARACT [None]
